FAERS Safety Report 10035989 (Version 1)
Quarter: 2014Q1

REPORT INFORMATION
  Report Type: Spontaneous
  Country: US (occurrence: US)
  Receive Date: 20140325
  Receipt Date: 20140325
  Transmission Date: 20141002
  Serious: Yes (Other)
  Sender: FDA-Public Use
  Company Number: US-PURDUE-USA-2014-0112289

PATIENT
  Age: 26 Year
  Sex: Male

DRUGS (4)
  1. OXYCODONE HYDROCHLORIDE (SIMILAR TO NDA 22-272) [Suspect]
     Indication: DRUG ABUSE
     Route: 048
  2. MORPHINE SULFATE (SIMILAR TO NDA 19-516) [Suspect]
     Indication: DRUG ABUSE
     Route: 048
  3. MARIJUANA [Suspect]
     Indication: SUBSTANCE ABUSE
     Route: 065
  4. HEROIN [Suspect]
     Indication: SUBSTANCE ABUSE
     Route: 065

REACTIONS (5)
  - Substance abuse [Unknown]
  - Road traffic accident [Unknown]
  - Impaired driving ability [Unknown]
  - Feeling abnormal [Unknown]
  - Confusional state [Unknown]
